FAERS Safety Report 22780740 (Version 2)
Quarter: 2024Q1

REPORT INFORMATION
  Report Type: Spontaneous
  Country: US (occurrence: US)
  Receive Date: 20230803
  Receipt Date: 20240207
  Transmission Date: 20240410
  Serious: No
  Sender: FDA-Public Use
  Company Number: US-ABBVIE-5352570

PATIENT
  Sex: Female
  Weight: 53.523 kg

DRUGS (2)
  1. BOTOX COSMETIC [Suspect]
     Active Substance: ONABOTULINUMTOXINA
     Indication: Skin wrinkling
     Dosage: TIME INTERVAL: AS NECESSARY: LASTED APPROXIMATE 8 WEEK?STRENGTH: 64 UNIT
     Route: 065
     Dates: start: 20230912, end: 20230912
  2. BOTOX COSMETIC [Suspect]
     Active Substance: ONABOTULINUMTOXINA
     Indication: Skin wrinkling
     Dosage: TIME INTERVAL: AS NECESSARY: TOTAL DOSE 50 UNITS
     Route: 065

REACTIONS (1)
  - Drug ineffective [Unknown]
